FAERS Safety Report 8062916-7 (Version None)
Quarter: 2012Q1

REPORT INFORMATION
  Report Type: 
  Country: None (occurrence: None)
  Receive Date: 20120123
  Receipt Date: 20120123
  Transmission Date: 20120608
  Serious: Yes (Life-Threatening)
  Sender: FDA-Public Use
  Company Number: None

PATIENT
  Age: 34 Year
  Sex: Female
  Weight: 68.038 kg

DRUGS (1)
  1. ORTHO EVRA [Suspect]
     Indication: CONTRACEPTION
     Dosage: ONE PATCH PER WEEK
     Route: 062
     Dates: start: 20120108, end: 20120121

REACTIONS (7)
  - SUICIDAL IDEATION [None]
  - NAUSEA [None]
  - DEPRESSION [None]
  - MOOD SWINGS [None]
  - ANXIETY [None]
  - STRESS [None]
  - RASH [None]
